FAERS Safety Report 18234415 (Version 2)
Quarter: 2020Q3

REPORT INFORMATION
  Report Type: Spontaneous
  Country: US (occurrence: US)
  Receive Date: 20200904
  Receipt Date: 20200918
  Transmission Date: 20201103
  Serious: Yes (Hospitalization)
  Sender: FDA-Public Use
  Company Number: US-TEVA-2020-US-1822569

PATIENT
  Age: 82 Year
  Sex: Female

DRUGS (2)
  1. INSULIN [Concomitant]
     Active Substance: INSULIN NOS
     Route: 065
  2. BACLOFEN TEVA [Suspect]
     Active Substance: BACLOFEN
     Dosage: TAKING FOR A LONG TIME
     Route: 065

REACTIONS (9)
  - Fall [Unknown]
  - Hand fracture [Recovered/Resolved]
  - Head injury [Unknown]
  - Hip fracture [Unknown]
  - Rib fracture [Recovered/Resolved]
  - Asthenia [Unknown]
  - Adverse drug reaction [Unknown]
  - Musculoskeletal disorder [Unknown]
  - Gait inability [Unknown]

NARRATIVE: CASE EVENT DATE: 201812
